FAERS Safety Report 4864475-6 (Version None)
Quarter: 2005Q4

REPORT INFORMATION
  Report Type: 
  Country: None (occurrence: None)
  Receive Date: 20051222
  Receipt Date: 20050829
  Transmission Date: 20060501
  Serious: Yes (Life-Threatening, Hospitalization)
  Sender: FDA-Public Use
  Company Number: FR-BRISTOL-MYERS SQUIBB COMPANY-13096011

PATIENT
  Age: 42 Year
  Sex: Female

DRUGS (5)
  1. MODECATE [Suspect]
     Indication: PSYCHOTIC DISORDER
     Route: 030
     Dates: end: 20050601
  2. TERCIAN [Suspect]
     Indication: PSYCHOTIC DISORDER
     Route: 048
     Dates: end: 20050601
  3. LOXAPAC [Suspect]
     Indication: PSYCHOTIC DISORDER
     Route: 048
     Dates: end: 20050601
  4. AVANDAMET [Concomitant]
     Indication: DIABETES MELLITUS
     Route: 048
  5. AMARYL [Concomitant]
     Indication: DIABETES MELLITUS
     Route: 048

REACTIONS (4)
  - NEUROLEPTIC MALIGNANT SYNDROME [None]
  - PYREXIA [None]
  - RENAL FAILURE ACUTE [None]
  - RHABDOMYOLYSIS [None]
